FAERS Safety Report 5228278-5 (Version None)
Quarter: 2007Q1

REPORT INFORMATION
  Report Type: 
  Country: None (occurrence: None)
  Receive Date: 20070205
  Receipt Date: 20070124
  Transmission Date: 20070707
  Serious: Yes (Other)
  Sender: FDA-Public Use
  Company Number: PHBS2007NL01541

PATIENT
  Sex: Male

DRUGS (3)
  1. DIOVAN [Suspect]
     Dosage: 80 MG, BID
  2. METFORMIN HCL [Concomitant]
  3. NORVASC [Concomitant]

REACTIONS (1)
  - ALBUMIN URINE PRESENT [None]
